FAERS Safety Report 23625622 (Version 1)
Quarter: 2024Q1

REPORT INFORMATION
  Report Type: Spontaneous
  Country: GB (occurrence: GB)
  Receive Date: 20240313
  Receipt Date: 20240313
  Transmission Date: 20240409
  Serious: Yes (Hospitalization, Other)
  Sender: FDA-Public Use
  Company Number: None

PATIENT

DRUGS (2)
  1. NEFOPAM [Suspect]
     Active Substance: NEFOPAM
     Indication: Back pain
     Dosage: 1 DOSAGE FORM, TID
     Dates: start: 20240222
  2. PREDNISOLONE [Suspect]
     Active Substance: PREDNISOLONE
     Dosage: 8 DOSAGE FORM

REACTIONS (13)
  - Pyrexia [Unknown]
  - Swollen tongue [Unknown]
  - Ocular hyperaemia [Unknown]
  - Gait disturbance [Unknown]
  - Feeling cold [Unknown]
  - Cold sweat [Unknown]
  - Pyrexia [Unknown]
  - Lethargy [Unknown]
  - Hypertension [Unknown]
  - Acne [Unknown]
  - Anaphylactic reaction [Unknown]
  - Dizziness [Unknown]
  - Diarrhoea [Recovering/Resolving]

NARRATIVE: CASE EVENT DATE: 20240226
